FAERS Safety Report 6964969-3 (Version None)
Quarter: 2010Q3

REPORT INFORMATION
  Report Type: 
  Country: None (occurrence: None)
  Receive Date: 20100903
  Receipt Date: 20100826
  Transmission Date: 20110219
  Serious: Yes (Hospitalization)
  Sender: FDA-Public Use
  Company Number: US-SANOFI-AVENTIS-2010SA051769

PATIENT
  Age: 12 Year
  Sex: Male

DRUGS (4)
  1. LANTUS [Suspect]
     Dosage: DOSE:27 UNIT(S)
     Route: 058
     Dates: start: 20080101, end: 20100601
  2. SOLOSTAR [Suspect]
     Dates: start: 20080101, end: 20100601
  3. HUMALIN [Concomitant]
  4. NOVOLOG [Concomitant]

REACTIONS (5)
  - HYPOGLYCAEMIA [None]
  - IMPAIRED GASTRIC EMPTYING [None]
  - INJECTION SITE ERYTHEMA [None]
  - INJECTION SITE SWELLING [None]
  - VOMITING [None]
